FAERS Safety Report 9466609 (Version 1)
Quarter: 2013Q3

REPORT INFORMATION
  Report Type: Spontaneous
  Country: NZ (occurrence: NZ)
  Receive Date: 20130820
  Receipt Date: 20130820
  Transmission Date: 20140515
  Serious: Yes (Other)
  Sender: FDA-Public Use
  Company Number: PHHY2013NZ088160

PATIENT
  Age: 81 Year
  Sex: Male

DRUGS (5)
  1. METOPROLOL [Suspect]
     Dosage: UNK UKN, UNK
     Route: 048
  2. DABIGATRAN [Suspect]
     Dosage: UNK UKN, UNK
     Route: 048
  3. BEZAFIBRATE [Concomitant]
     Route: 048
  4. CILAZAPRIL [Concomitant]
     Dosage: UNK UKN, UNK
     Route: 048
  5. DOXAZOSIN [Concomitant]
     Dosage: UNK UKN, UNK
     Route: 048

REACTIONS (1)
  - Pemphigus [Unknown]
